FAERS Safety Report 6936916-1 (Version None)
Quarter: 2010Q3

REPORT INFORMATION
  Report Type: 
  Country: None (occurrence: None)
  Receive Date: 20100823
  Receipt Date: 20100816
  Transmission Date: 20110219
  Serious: Yes (Other)
  Sender: FDA-Public Use
  Company Number: JP-ELI_LILLY_AND_COMPANY-JP201008003965

PATIENT
  Age: 78 Year
  Sex: Male

DRUGS (3)
  1. GEMZAR [Suspect]
     Indication: TRANSITIONAL CELL CARCINOMA
     Route: 042
     Dates: start: 20100701
  2. CARBOPLATIN [Concomitant]
     Indication: TRANSITIONAL CELL CARCINOMA
     Route: 042
     Dates: start: 20100701
  3. PALONOSETRON HYDROCHLORIDE [Concomitant]
     Indication: TRANSITIONAL CELL CARCINOMA
     Route: 042
     Dates: start: 20100701

REACTIONS (1)
  - ARTHRALGIA [None]
